FAERS Safety Report 12273759 (Version 1)
Quarter: 2016Q2

REPORT INFORMATION
  Report Type: Spontaneous
  Country: BE (occurrence: BE)
  Receive Date: 20160415
  Receipt Date: 20160415
  Transmission Date: 20160815
  Serious: Yes (Other)
  Sender: FDA-Public Use
  Company Number: BE-PFIZER INC-2016211860

PATIENT
  Sex: Male

DRUGS (1)
  1. SOSTILAR [Suspect]
     Active Substance: CABERGOLINE
     Indication: PITUITARY TUMOUR BENIGN
     Dosage: 0.5 DF, ALTERNATE DAY
     Route: 048
     Dates: start: 2015

REACTIONS (4)
  - Aggression [Unknown]
  - Gambling disorder [Unknown]
  - Paraphilia [Unknown]
  - Abnormal behaviour [Unknown]

NARRATIVE: CASE EVENT DATE: 201603
